FAERS Safety Report 6757966-4 (Version None)
Quarter: 2010Q2

REPORT INFORMATION
  Report Type: 
  Country: None (occurrence: None)
  Receive Date: 20100607
  Receipt Date: 20100527
  Transmission Date: 20101027
  Serious: Yes (Other)
  Sender: FDA-Public Use
  Company Number: BR-MPIJNJ-2010-01516

PATIENT

DRUGS (1)
  1. VELCADE [Suspect]
     Indication: LUNG TRANSPLANT REJECTION
     Dosage: 1.3 MG/M2, UNK
     Dates: start: 20090101

REACTIONS (4)
  - BRONCHOPNEUMONIA [None]
  - CYTOMEGALOVIRUS INFECTION [None]
  - HYPOXIA [None]
  - TRACHEOBRONCHITIS [None]
